FAERS Safety Report 5599210-X (Version None)
Quarter: 2008Q1

REPORT INFORMATION
  Report Type: 
  Country: None (occurrence: None)
  Receive Date: 20080122
  Receipt Date: 20080114
  Transmission Date: 20080703
  Serious: Yes (Hospitalization)
  Sender: FDA-Public Use
  Company Number: BR-MERCK-0801BRA00031

PATIENT
  Age: 18 Month
  Sex: Female
  Weight: 10 kg

DRUGS (2)
  1. MONTELUKAST SODIUM [Suspect]
     Indication: ASTHMA
     Route: 048
     Dates: start: 20070101
  2. FERROUS SULFATE [Concomitant]
     Indication: ANAEMIA
     Route: 065
     Dates: start: 20071101

REACTIONS (3)
  - CHILLS [None]
  - PALLOR [None]
  - PETIT MAL EPILEPSY [None]
